FAERS Safety Report 14376636 (Version 1)
Quarter: 2018Q1

REPORT INFORMATION
  Report Type: Spontaneous
  Country: US (occurrence: US)
  Receive Date: 20180110
  Receipt Date: 20180110
  Transmission Date: 20180509
  Serious: No
  Sender: FDA-Public Use
  Company Number: None

PATIENT
  Age: 50 Year
  Sex: Male

DRUGS (1)
  1. HUMIRA [Suspect]
     Active Substance: ADALIMUMAB
     Indication: COLITIS
     Dosage: 40MG/0.8ML EVERY OTHER WEEK
     Route: 058
     Dates: start: 20160819, end: 20180110

REACTIONS (2)
  - Drug intolerance [None]
  - Antibody test abnormal [None]

NARRATIVE: CASE EVENT DATE: 20180110
